FAERS Safety Report 9824744 (Version 1)
Quarter: 2014Q1

REPORT INFORMATION
  Report Type: Spontaneous
  Country: US (occurrence: US)
  Receive Date: 20140117
  Receipt Date: 20140117
  Transmission Date: 20141002
  Serious: No
  Sender: FDA-Public Use
  Company Number: US-B.I. PHARMACEUTICALS,INC./RIDGEFIELD-2014-BI-00763BP

PATIENT
  Age: 58 Year
  Sex: Male
  Weight: 88 kg

DRUGS (4)
  1. SPIRIVA [Suspect]
     Indication: DYSPNOEA
     Dosage: 18 MCG
     Route: 055
     Dates: start: 20131218
  2. SPIRIVA [Suspect]
     Indication: LUNG NEOPLASM MALIGNANT
  3. ATENOLOL [Concomitant]
     Indication: HYPERTENSION
     Dosage: 5 MG
     Route: 048
  4. WARFARIN [Concomitant]
     Indication: ANTICOAGULANT THERAPY
     Dosage: 5 MG
     Route: 048

REACTIONS (2)
  - Oropharyngeal pain [Not Recovered/Not Resolved]
  - Off label use [Unknown]
